FAERS Safety Report 7879159 (Version 2)
Quarter: 2015Q1

REPORT INFORMATION
  Report Type: Spontaneous
  Country: US (occurrence: US)
  Receive Date: 20110330
  Receipt Date: 20150304
  Transmission Date: 20150721
  Serious: Yes (Other)
  Sender: FDA-Public Use
  Company Number: US-AMGEN-USASP2010008613

PATIENT
  Age: 61 Year
  Sex: Male

DRUGS (1)
  1. NPLATE [Suspect]
     Active Substance: ROMIPLOSTIM
     Indication: IMMUNE THROMBOCYTOPENIC PURPURA
     Dosage: 500 MUG, 6 TO 8 WEEKS
     Route: 065
     Dates: start: 2008

REACTIONS (3)
  - Haemorrhage [Unknown]
  - Waldenstrom^s macroglobulinaemia [Unknown]
  - Platelet count decreased [Unknown]
